FAERS Safety Report 9747644 (Version 3)
Quarter: 2013Q4

REPORT INFORMATION
  Report Type: Report from Study
  Country: ZA (occurrence: ZA)
  Receive Date: 20131212
  Receipt Date: 20131219
  Transmission Date: 20140711
  Serious: Yes (Hospitalization)
  Sender: FDA-Public Use
  Company Number: ZA-ROCHE-1311413

PATIENT
  Age: 34 Year
  Sex: Female
  Weight: 71.8 kg

DRUGS (6)
  1. VEMURAFENIB [Suspect]
     Indication: MALIGNANT MELANOMA
     Route: 048
     Dates: start: 20131024, end: 20131126
  2. TRAMACET [Concomitant]
     Route: 065
     Dates: start: 20131003
  3. ALTOSEC [Concomitant]
     Route: 065
     Dates: start: 20131024
  4. XEFO [Concomitant]
     Route: 065
     Dates: start: 20130927
  5. DUROGESIC [Concomitant]
     Route: 065
     Dates: start: 20131010
  6. PHENERGAN [Concomitant]
     Route: 065
     Dates: start: 20131104

REACTIONS (1)
  - Hepatitis infectious mononucleosis [Not Recovered/Not Resolved]
